FAERS Safety Report 8531224-X (Version None)
Quarter: 2012Q3

REPORT INFORMATION
  Report Type: 
  Country: None (occurrence: None)
  Receive Date: 20120723
  Receipt Date: 20120710
  Transmission Date: 20120928
  Serious: Yes (Hospitalization)
  Sender: FDA-Public Use
  Company Number: US-ELI_LILLY_AND_COMPANY-US201207003794

PATIENT
  Age: 58 Year
  Sex: Female

DRUGS (9)
  1. CYMBALTA [Suspect]
     Indication: FIBROMYALGIA
     Dosage: 60 MG, QD
  2. LOSARTAN POTASSIUM AND HYDROCHLOROTHIAZIDE [Concomitant]
  3. VITAMIN D [Concomitant]
  4. POTASSIUM CHLORIDE [Concomitant]
  5. AMLODIPINE BESYLATE AND BENAZEPRIL HCL [Concomitant]
  6. OXYBUTYNINE [Concomitant]
  7. SIMVASTATIN [Concomitant]
  8. IBUPROFEN [Concomitant]
     Dosage: 800 MG, BID AND PRN
  9. LEVOTHYROXINE SODIUM [Concomitant]

REACTIONS (1)
  - KNEE ARTHROPLASTY [None]
